FAERS Safety Report 19883686 (Version 2)
Quarter: 2021Q4

REPORT INFORMATION
  Report Type: Spontaneous
  Country: CN (occurrence: CN)
  Receive Date: 20210927
  Receipt Date: 20211013
  Transmission Date: 20220303
  Serious: No
  Sender: FDA-Public Use
  Company Number: CN-TAKEDA-2021TJP087388

PATIENT
  Sex: Female

DRUGS (1)
  1. ENANTONE LP [Suspect]
     Active Substance: LEUPROLIDE ACETATE
     Indication: Breast cancer
     Dosage: 11.25 MILLIGRAM, Q3MONTHS
     Route: 050

REACTIONS (3)
  - Injection site haemorrhage [Recovering/Resolving]
  - Swelling [Recovered/Resolved]
  - Pain [Recovering/Resolving]
